FAERS Safety Report 24235603 (Version 4)
Quarter: 2024Q4

REPORT INFORMATION
  Report Type: Spontaneous
  Country: US (occurrence: US)
  Receive Date: 20240822
  Receipt Date: 20241224
  Transmission Date: 20250114
  Serious: Yes (Other)
  Sender: CSL BEHRING
  Company Number: US-BEH-2024177296

PATIENT
  Sex: Female

DRUGS (2)
  1. HIZENTRA [Suspect]
     Active Substance: HUMAN IMMUNOGLOBULIN G
     Indication: Hypogammaglobulinaemia
     Dosage: 1 G, QW
     Route: 058
     Dates: start: 202303
  2. HIZENTRA [Suspect]
     Active Substance: HUMAN IMMUNOGLOBULIN G
     Dosage: 2 G, QW
     Route: 058
     Dates: start: 202303

REACTIONS (13)
  - Mental impairment [Unknown]
  - Decreased appetite [Unknown]
  - Feeling abnormal [Unknown]
  - Dizziness [Unknown]
  - Disturbance in attention [Unknown]
  - Micturition frequency decreased [Unknown]
  - Infusion site pain [Unknown]
  - Infusion site pruritus [Unknown]
  - Infusion site swelling [Unknown]
  - Dyspnoea [Unknown]
  - Peripheral swelling [Unknown]
  - Urine output decreased [Unknown]
  - Decreased appetite [Unknown]
